FAERS Safety Report 10330635 (Version 1)
Quarter: 2014Q3

REPORT INFORMATION
  Report Type: Spontaneous
  Country: US (occurrence: None)
  Receive Date: 20140718
  Receipt Date: 20140718
  Transmission Date: 20150326
  Serious: Yes (Life-Threatening)
  Sender: FDA-Public Use
  Company Number: None

PATIENT
  Age: 92 Year
  Sex: Female

DRUGS (1)
  1. DILANTIN [Suspect]
     Active Substance: PHENYTOIN
     Indication: CONVULSION
     Dosage: 3, ONCE DAILY, TAKEN BY MOUTH
     Route: 048
     Dates: start: 20140713, end: 20140715

REACTIONS (5)
  - Deep vein thrombosis [None]
  - Peripheral swelling [None]
  - Lip discolouration [None]
  - Lip swelling [None]
  - Rash macular [None]

NARRATIVE: CASE EVENT DATE: 20140716
